FAERS Safety Report 8955873 (Version 2)
Quarter: 2013Q1

REPORT INFORMATION
  Report Type: Spontaneous
  Country: US (occurrence: US)
  Receive Date: 20121210
  Receipt Date: 20130212
  Transmission Date: 20140127
  Serious: No
  Sender: FDA-Public Use
  Company Number: US-009507513-1211USA004936

PATIENT
  Sex: 0

DRUGS (2)
  1. FOLLISTIM AQ CARTRIDGE [Suspect]
  2. PEN INJECTOR [Suspect]

REACTIONS (2)
  - Drug dose omission [Unknown]
  - Medical device complication [Unknown]
